FAERS Safety Report 5707864-X (Version None)
Quarter: 2008Q2

REPORT INFORMATION
  Report Type: 
  Country: None (occurrence: None)
  Receive Date: 20080414
  Receipt Date: 20080401
  Transmission Date: 20081010
  Serious: Yes (Other)
  Sender: FDA-Public Use
  Company Number: 100#02#2008-01647

PATIENT
  Age: 37 Year
  Sex: Female

DRUGS (1)
  1. FLUCONAZOLE [Suspect]
     Indication: DRUG USE FOR UNKNOWN INDICATION
     Dosage: 15O MG ORAL
     Route: 048
     Dates: start: 20080318, end: 20080318

REACTIONS (4)
  - ERYTHEMA MULTIFORME [None]
  - HEADACHE [None]
  - HEART RATE INCREASED [None]
  - TOXIC EPIDERMAL NECROLYSIS [None]
